FAERS Safety Report 5787132-0 (Version None)
Quarter: 2008Q2

REPORT INFORMATION
  Report Type: 
  Country: None (occurrence: None)
  Receive Date: 20080623
  Receipt Date: 20080623
  Transmission Date: 20081010
  Serious: No
  Sender: FDA-Public Use
  Company Number: None

PATIENT
  Sex: Male
  Weight: 49.8957 kg

DRUGS (1)
  1. IBUPROFEN [Suspect]
     Indication: BACK PAIN
     Dosage: ONE TABLET EVERY 8 HOURS PO
     Route: 048
     Dates: start: 20080430, end: 20080501

REACTIONS (3)
  - AURICULAR SWELLING [None]
  - EYE SWELLING [None]
  - RASH [None]
